FAERS Safety Report 15155336 (Version 3)
Quarter: 2018Q3

REPORT INFORMATION
  Report Type: Report from Study
  Country: MX (occurrence: MX)
  Receive Date: 20180717
  Receipt Date: 20180810
  Transmission Date: 20181010
  Serious: Yes (Other)
  Sender: FDA-Public Use
  Company Number: PHHY2018MX044194

PATIENT
  Sex: Female
  Weight: 70 kg

DRUGS (8)
  1. DICLOFENAC [Concomitant]
     Active Substance: DICLOFENAC
     Indication: ASTHENIA
     Dosage: 1 DF, QD
     Route: 048
  2. GALVUS MET [Suspect]
     Active Substance: METFORMIN HYDROCHLORIDE\VILDAGLIPTIN
     Indication: HYPERTENSION
     Dosage: UNK UNK, QD (STARTED WITH 2 TABLETS DAILY AND DECREASED THE DOSE GRADUALLY UNTIL DISCONTINUING IT)
     Route: 048
  3. DIOVAN [Suspect]
     Active Substance: VALSARTAN
     Indication: HYPERTENSION
     Dosage: 1 DF, QD (8 YEARS)
     Route: 048
  4. OXYGEN. [Concomitant]
     Active Substance: OXYGEN
     Indication: CARDIAC DISORDER
     Dosage: UNK (2 OR 3 TIMES WEEKLY DURING 30 MINUTES)
     Route: 055
  5. GALVUS MET [Suspect]
     Active Substance: METFORMIN HYDROCHLORIDE\VILDAGLIPTIN
     Dosage: 1 DF, QD (8 YEARS AGO)
     Route: 048
  6. CO?DIOVAN [Suspect]
     Active Substance: HYDROCHLOROTHIAZIDE\VALSARTAN
     Indication: HYPERTENSION
     Dosage: 1 DF, QD (12.5 MG HYDROCHLOROTHIAZIDE AND 80 MG VALSARTAN)
     Route: 048
  7. DICLOFENAC [Concomitant]
     Active Substance: DICLOFENAC
     Indication: PAIN
     Dosage: 1 DF, PRN
     Route: 065
  8. VITAMIN B COMPLEX [Concomitant]
     Active Substance: CYANOCOBALAMIN\DEXPANTHENOL\NIACINAMIDE\PYRIDOXINE HYDROCHLORIDE\RIBOFLAVIN 5^-PHOSPHATE SODIUM\THIAMINE HYDROCHLORIDE\VITAMIN B COMPLEX
     Indication: ASTHENIA
     Dosage: 1 DF, QD (10 YEARS AGO)
     Route: 048

REACTIONS (10)
  - Cardiomyopathy [Unknown]
  - Product use in unapproved indication [Unknown]
  - Colitis [Recovering/Resolving]
  - Pollakiuria [Not Recovered/Not Resolved]
  - Mastication disorder [Not Recovered/Not Resolved]
  - Trismus [Not Recovered/Not Resolved]
  - Visual impairment [Not Recovered/Not Resolved]
  - Myocardial ischaemia [Unknown]
  - Diarrhoea [Recovered/Resolved]
  - Depression [Not Recovered/Not Resolved]
